FAERS Safety Report 12343105 (Version 2)
Quarter: 2016Q2

REPORT INFORMATION
  Report Type: Spontaneous
  Country: US (occurrence: US)
  Receive Date: 20160506
  Receipt Date: 20160624
  Transmission Date: 20160815
  Serious: Yes (Death)
  Sender: FDA-Public Use
  Company Number: US-CELGENEUS-USA-2016050942

PATIENT
  Sex: Female

DRUGS (4)
  1. DECADRON [Concomitant]
     Active Substance: DEXAMETHASONE
     Indication: CHEMOTHERAPY
     Route: 041
  2. KYTRIL [Concomitant]
     Active Substance: GRANISETRON HYDROCHLORIDE
     Indication: CHEMOTHERAPY
     Dosage: 1000 MICROGRAM
     Route: 065
  3. ABRAXANE [Suspect]
     Active Substance: PACLITAXEL
     Indication: BREAST CANCER METASTATIC
     Route: 041
     Dates: start: 20140624, end: 20141028
  4. ABRAXANE [Suspect]
     Active Substance: PACLITAXEL
     Dosage: 10 MILLIGRAM
     Route: 041
     Dates: start: 20151210, end: 20160203

REACTIONS (1)
  - Breast cancer metastatic [Fatal]
